FAERS Safety Report 14143020 (Version 2)
Quarter: 2017Q4

REPORT INFORMATION
  Report Type: Report from Study
  Country: IL (occurrence: IL)
  Receive Date: 20171030
  Receipt Date: 20171106
  Transmission Date: 20180321
  Serious: Yes (Hospitalization)
  Sender: FDA-Public Use
  Company Number: IL-B.I. PHARMACEUTICALS,INC./RIDGEFIELD-2017-BI-032105

PATIENT
  Age: 70 Year
  Sex: Male
  Weight: 69 kg

DRUGS (10)
  1. CARDILOC [Concomitant]
     Active Substance: BISOPROLOL FUMARATE
     Indication: MYOCARDIAL ISCHAEMIA
     Route: 048
     Dates: start: 20020201
  2. BI 1356 [Suspect]
     Active Substance: LINAGLIPTIN
     Indication: TYPE 2 DIABETES MELLITUS
     Route: 048
     Dates: start: 20120323, end: 20170713
  3. MONOCORD [Concomitant]
     Indication: CARDIAC FAILURE CONGESTIVE
     Dosage: DOSE: 50
     Route: 048
     Dates: start: 2002
  4. FAMOTIDINE. [Concomitant]
     Active Substance: FAMOTIDINE
     Indication: DUODENAL ULCER
     Route: 048
     Dates: start: 200205
  5. FUSID [Concomitant]
     Active Substance: FUROSEMIDE
     Indication: HYPERTENSION
     Route: 048
     Dates: start: 20130614
  6. FOLIC ACID. [Concomitant]
     Active Substance: FOLIC ACID
     Indication: ANAEMIA PROPHYLAXIS
     Route: 048
     Dates: start: 20170201
  7. TRITACE [Concomitant]
     Active Substance: RAMIPRIL
     Indication: HYPERTENSION
     Route: 048
     Dates: start: 2003
  8. SIMVASTATIN. [Concomitant]
     Active Substance: SIMVASTATIN
     Indication: HYPERTENSION
     Route: 048
     Dates: start: 2003
  9. CIPRALEX [Concomitant]
     Active Substance: ESCITALOPRAM OXALATE
     Indication: ANXIETY
     Route: 048
     Dates: start: 20161012
  10. ALDACTONE [Concomitant]
     Active Substance: SPIRONOLACTONE
     Indication: HYPERTENSION
     Route: 048
     Dates: start: 2003

REACTIONS (1)
  - Transient acantholytic dermatosis [Not Recovered/Not Resolved]

NARRATIVE: CASE EVENT DATE: 20170307
